FAERS Safety Report 17191685 (Version 1)
Quarter: 2020Q1

REPORT INFORMATION
  Report Type: Spontaneous
  Country: US (occurrence: US)
  Receive Date: 20191222
  Receipt Date: 20191222
  Transmission Date: 20200409
  Serious: No
  Sender: FDA-Public Use
  Company Number: None

PATIENT
  Age: 42 Year
  Sex: Female
  Weight: 72 kg

DRUGS (1)
  1. COMBIPATCH [Suspect]
     Active Substance: ESTRADIOL\NORETHINDRONE ACETATE
     Indication: OOPHORECTOMY
     Dosage: ?          QUANTITY:1 PATCH(ES);OTHER FREQUENCY:TWICE A WEEK;?
     Route: 062
     Dates: start: 20191124, end: 20191219

REACTIONS (4)
  - Application site irritation [None]
  - Pruritus [None]
  - Skin exfoliation [None]
  - Application site erythema [None]

NARRATIVE: CASE EVENT DATE: 20191215
